FAERS Safety Report 25025321 (Version 1)
Quarter: 2025Q1

REPORT INFORMATION
  Report Type: Spontaneous
  Country: CN (occurrence: CN)
  Receive Date: 20250228
  Receipt Date: 20250228
  Transmission Date: 20250408
  Serious: Yes (Other)
  Sender: PFIZER
  Company Number: CN-PFIZER INC-PV202500023684

PATIENT
  Age: 22 Year
  Sex: Male

DRUGS (1)
  1. ABROCITINIB [Suspect]
     Active Substance: ABROCITINIB
     Dosage: 100 MG, 1X/DAY
     Route: 048
     Dates: start: 20240430, end: 20250225

REACTIONS (3)
  - Alopecia [Unknown]
  - Therapeutic product effect incomplete [Unknown]
  - Abdominal discomfort [Unknown]

NARRATIVE: CASE EVENT DATE: 20250225
